FAERS Safety Report 24222617 (Version 1)
Quarter: 2024Q3

REPORT INFORMATION
  Report Type: Spontaneous
  Country: US (occurrence: None)
  Receive Date: 20240816
  Receipt Date: 20240816
  Transmission Date: 20241017
  Serious: Yes (Disabling)
  Sender: Public
  Company Number: None

PATIENT
  Age: 77 Year
  Sex: Female
  Weight: 70.65 kg

DRUGS (3)
  1. PROLIA [Suspect]
     Active Substance: DENOSUMAB
     Indication: Osteoporosis
     Route: 030
     Dates: start: 20201120, end: 20240515
  2. OMEPRAZOLE [Concomitant]
     Active Substance: OMEPRAZOLE
  3. PRAVASTATIN [Concomitant]
     Active Substance: PRAVASTATIN

REACTIONS (11)
  - Back pain [None]
  - Rash [None]
  - Dry skin [None]
  - Headache [None]
  - Nausea [None]
  - Loss of personal independence in daily activities [None]
  - Insomnia [None]
  - Decreased appetite [None]
  - Feeding disorder [None]
  - Lip swelling [None]
  - Alopecia [None]

NARRATIVE: CASE EVENT DATE: 20240515
